FAERS Safety Report 8204115-1 (Version None)
Quarter: 2012Q1

REPORT INFORMATION
  Report Type: 
  Country: None (occurrence: None)
  Receive Date: 20120313
  Receipt Date: 20120306
  Transmission Date: 20120608
  Serious: No
  Sender: FDA-Public Use
  Company Number: GB-UCBSA-052855

PATIENT
  Age: 72 Year
  Sex: Female

DRUGS (1)
  1. KEPPRA [Suspect]
     Dosage: DOSE:1000

REACTIONS (1)
  - LEUKOPENIA [None]
